APPROVED DRUG PRODUCT: FOSINOPRIL SODIUM
Active Ingredient: FOSINOPRIL SODIUM
Strength: 10MG
Dosage Form/Route: TABLET;ORAL
Application: A076139 | Product #001 | TE Code: AB
Applicant: TEVA PHARMACEUTICALS USA INC
Approved: Nov 25, 2003 | RLD: No | RS: No | Type: RX